FAERS Safety Report 24216312 (Version 1)
Quarter: 2024Q3

REPORT INFORMATION
  Report Type: Spontaneous
  Country: CN (occurrence: CN)
  Receive Date: 20240816
  Receipt Date: 20240816
  Transmission Date: 20241017
  Serious: Yes (Death, Life-Threatening, Hospitalization, Other)
  Sender: AMGEN
  Company Number: CN-AMGEN-CHNSP2024161358

PATIENT
  Age: 48 Year
  Sex: Female

DRUGS (10)
  1. BLINATUMOMAB [Suspect]
     Active Substance: BLINATUMOMAB
     Indication: Philadelphia positive acute lymphocytic leukaemia
     Dosage: 9 MICROGRAM, QD, FOR THE FIRST 7 DAYS, CONTINUOUSLY INFUSED FOR 4 WEEKS
     Route: 065
  2. BLINATUMOMAB [Suspect]
     Active Substance: BLINATUMOMAB
     Dosage: 28 MICROGRAM, QD, THEREAFTER, CONTINUOUSLY INFUSED FOR 4 WEEKS
     Route: 065
  3. FLUMATINIB [Concomitant]
     Active Substance: FLUMATINIB
     Dosage: UNK
     Dates: start: 202108
  4. VINCRISTINE [Concomitant]
     Active Substance: VINCRISTINE
     Dosage: UNK
     Dates: start: 202108
  5. CYCLOPHOSPHAMIDE [Concomitant]
     Active Substance: CYCLOPHOSPHAMIDE
     Dosage: UNK
     Dates: start: 202108
  6. PREDNISONE [Concomitant]
     Active Substance: PREDNISONE
     Dosage: UNK
     Dates: start: 202108
  7. VENETOCLAX [Concomitant]
     Active Substance: VENETOCLAX
  8. OMACETAXINE MEPESUCCINATE [Concomitant]
     Active Substance: OMACETAXINE MEPESUCCINATE
  9. CYTARABINE [Concomitant]
     Active Substance: CYTARABINE
  10. OLVEREMBATINIB [Concomitant]
     Active Substance: OLVEREMBATINIB
     Dosage: 40 MILLIGRAM, QOD

REACTIONS (2)
  - Acute respiratory distress syndrome [Fatal]
  - COVID-19 pneumonia [Unknown]
